FAERS Safety Report 9255835 (Version 4)
Quarter: 2014Q2

REPORT INFORMATION
  Report Type: Report from Study
  Country: JP (occurrence: JP)
  Receive Date: 20130425
  Receipt Date: 20140623
  Transmission Date: 20141212
  Serious: No
  Sender: FDA-Public Use
  Company Number: JP-VERTEX PHARMACEUTICALS INC.-2013-005371

PATIENT
  Age: 58 Year
  Sex: Female

DRUGS (20)
  1. VX-950 (TELAPREVIR) [Suspect]
     Indication: CHRONIC HEPATITIS C
     Dosage: 750 MG, QD
     Route: 048
     Dates: start: 20120903, end: 20120904
  2. VX-950 (TELAPREVIR) [Suspect]
     Dosage: 1500 MG, QD
     Route: 048
     Dates: start: 20120905, end: 20120918
  3. VX-950 (TELAPREVIR) [Suspect]
     Dosage: 750 MG, QD
     Route: 048
     Dates: start: 20120919, end: 20121014
  4. VX-950 (TELAPREVIR) [Suspect]
     Dosage: 1500 MG, QD
     Route: 048
     Dates: start: 20121015, end: 20121125
  5. RIBAVIRIN [Suspect]
     Indication: CHRONIC HEPATITIS C
     Dosage: 600 MG, QD
     Route: 048
     Dates: start: 20120903, end: 20120923
  6. RIBAVIRIN [Suspect]
     Dosage: 400 MG, QD
     Route: 048
     Dates: start: 20120924, end: 20120930
  7. RIBAVIRIN [Suspect]
     Dosage: 500 MG, QD
     Route: 048
     Dates: start: 20121001, end: 20121028
  8. RIBAVIRIN [Suspect]
     Dosage: 400 MG, QD
     Route: 048
     Dates: start: 20121029, end: 20121209
  9. RIBAVIRIN [Suspect]
     Dosage: 500 MG, QD
     Route: 048
     Dates: start: 20121210, end: 20130203
  10. RIBAVIRIN [Suspect]
     Dosage: 600 MG, QD
     Route: 048
     Dates: start: 20130204, end: 20130218
  11. PEGINTERFERON ALFA-2B [Suspect]
     Indication: CHRONIC HEPATITIS C
     Dosage: 0.75 ?G/KG, QW
     Route: 058
     Dates: start: 20120903, end: 20120909
  12. PEGINTERFERON ALFA-2B [Suspect]
     Dosage: 1.0 ?G/KG, QW
     Route: 058
     Dates: start: 20120910, end: 20120923
  13. PEGINTERFERON ALFA-2B [Suspect]
     Dosage: 1.5 ?G/KG, QW
     Route: 058
     Dates: start: 20120924, end: 20130212
  14. URSO [Concomitant]
     Dosage: 600 MG, QD
     Route: 048
     Dates: end: 20120910
  15. FAMOTIDINE [Concomitant]
     Dosage: 20 MG, QD
     Route: 048
     Dates: end: 20121125
  16. ONEALFA [Concomitant]
     Dosage: 0.5 MG, QD
     Route: 048
  17. PROMAC [Concomitant]
     Dosage: 75 MG, QD
     Route: 048
  18. NAUZELIN [Concomitant]
     Dosage: 10 MG, QD
     Route: 048
     Dates: end: 20121014
  19. NEXIUM [Concomitant]
     Dosage: 20 MG, QD
     Route: 048
     Dates: start: 20121126
  20. PREDONINE [Concomitant]
     Dosage: 5 MG, QD
     Route: 048
     Dates: end: 20130304

REACTIONS (1)
  - Toxic skin eruption [Recovered/Resolved]
